FAERS Safety Report 16481613 (Version 1)
Quarter: 2019Q2

REPORT INFORMATION
  Report Type: Spontaneous
  Country: CN (occurrence: CN)
  Receive Date: 20190627
  Receipt Date: 20190627
  Transmission Date: 20190711
  Serious: Yes (Hospitalization)
  Sender: FDA-Public Use
  Company Number: CN-BAXTER-2019BAX012595

PATIENT
  Age: 13 Year
  Sex: Male
  Weight: 40 kg

DRUGS (3)
  1. HOLOXAN [Suspect]
     Active Substance: IFOSFAMIDE
     Indication: BONE SARCOMA
     Dosage: IFOSFAMIDE 3.5 GRAM + NS 500 ML
     Route: 041
     Dates: start: 20190330, end: 20190402
  2. 0.9% SODIUM CHLORIDE INJECTION [Suspect]
     Active Substance: SODIUM CHLORIDE
     Indication: MEDICATION DILUTION
     Dosage: IFOSFAMIDE 3.5 GRAM + NS 500 ML
     Route: 041
     Dates: start: 20190330, end: 20190402
  3. HOLOXAN [Suspect]
     Active Substance: IFOSFAMIDE
     Route: 041
     Dates: start: 20190405, end: 20190405

REACTIONS (1)
  - Bone marrow failure [Recovering/Resolving]

NARRATIVE: CASE EVENT DATE: 20190406
